FAERS Safety Report 19384333 (Version 2)
Quarter: 2022Q1

REPORT INFORMATION
  Report Type: Spontaneous
  Country: US (occurrence: US)
  Receive Date: 20210608
  Receipt Date: 20220128
  Transmission Date: 20220423
  Serious: Yes (Hospitalization, Other)
  Sender: FDA-Public Use
  Company Number: US-GILEAD-2021-0534823

PATIENT
  Age: 42 Year
  Sex: Male
  Weight: 108 kg

DRUGS (55)
  1. ATRIPLA [Suspect]
     Active Substance: EFAVIRENZ\EMTRICITABINE\TENOFOVIR DISOPROXIL FUMARATE
     Indication: HIV infection
     Dosage: UNK
     Route: 048
     Dates: start: 2009
  2. ATRIPLA [Suspect]
     Active Substance: EFAVIRENZ\EMTRICITABINE\TENOFOVIR DISOPROXIL FUMARATE
     Dosage: UNK
     Route: 048
     Dates: start: 200607, end: 201108
  3. FOSRENOL [Concomitant]
     Active Substance: LANTHANUM CARBONATE
  4. RENVELA [Concomitant]
     Active Substance: SEVELAMER CARBONATE
  5. CAMPATH [Concomitant]
     Active Substance: ALEMTUZUMAB
  6. PREDNISONE [Concomitant]
     Active Substance: PREDNISONE
  7. IRON [Concomitant]
     Active Substance: IRON
  8. EPIVIR [Concomitant]
     Active Substance: LAMIVUDINE
  9. NORVIR [Concomitant]
     Active Substance: RITONAVIR
  10. PREZISTA [Concomitant]
     Active Substance: DARUNAVIR ETHANOLATE
  11. RETROVIR [Concomitant]
     Active Substance: ZIDOVUDINE
  12. TIVICAY [Concomitant]
     Active Substance: DOLUTEGRAVIR SODIUM
  13. TRIUMEQ [Concomitant]
     Active Substance: ABACAVIR SULFATE\DOLUTEGRAVIR SODIUM\LAMIVUDINE
  14. ABACAVIR [Concomitant]
     Active Substance: ABACAVIR
  15. ALPRAZOLAM [Concomitant]
     Active Substance: ALPRAZOLAM
  16. AMLODIPINE [Concomitant]
     Active Substance: AMLODIPINE BESYLATE
  17. CALCITRIOL [Concomitant]
     Active Substance: CALCITRIOL
  18. CALCIUM ACETATE [Concomitant]
     Active Substance: CALCIUM ACETATE
  19. CALCIUM PHOSPHATE, DIBASIC, ANHYDROUS [Concomitant]
     Active Substance: CALCIUM PHOSPHATE, DIBASIC, ANHYDROUS
  20. CARVEDILOL [Concomitant]
     Active Substance: CARVEDILOL
  21. CETIRIZINE [Concomitant]
     Active Substance: CETIRIZINE HYDROCHLORIDE
  22. CICLOPIROX [Concomitant]
     Active Substance: CICLOPIROX
  23. CITALOPRAM [Concomitant]
     Active Substance: CITALOPRAM HYDROBROMIDE
  24. CLOTRIMAZOLE [Concomitant]
     Active Substance: CLOTRIMAZOLE
  25. CYCLOBENZAPRINE [Concomitant]
     Active Substance: CYCLOBENZAPRINE
  26. DIALYVITE [Concomitant]
     Active Substance: ASCORBIC ACID\BIOTIN\CALCIUM PANTOTHENATE\COBALAMIN\FOLIC ACID\NIACINAMIDE\PYRIDOXINE HYDROCHLORIDE\
  27. DILTIAZEM [Concomitant]
     Active Substance: DILTIAZEM
  28. FENOFIBRATE [Concomitant]
     Active Substance: FENOFIBRATE
  29. FLUTICASONE [Concomitant]
     Active Substance: FLUTICASONE
  30. FUROSEMIDE [Concomitant]
     Active Substance: FUROSEMIDE
  31. HYDRALAZINE [Concomitant]
     Active Substance: HYDRALAZINE HYDROCHLORIDE
  32. HYDROCODONE [Concomitant]
     Active Substance: HYDROCODONE
  33. HYDROCORTISONE [Concomitant]
     Active Substance: HYDROCORTISONE
  34. IPRATROPIUM [Concomitant]
     Active Substance: IPRATROPIUM
  35. KETOCONAZOLE [Concomitant]
     Active Substance: KETOCONAZOLE
  36. LAMIVUDINE [Concomitant]
     Active Substance: LAMIVUDINE
  37. LEVOTHYROXINE [Concomitant]
     Active Substance: LEVOTHYROXINE
  38. LORATADINE [Concomitant]
     Active Substance: LORATADINE
  39. METHOCARBAMOL [Concomitant]
     Active Substance: METHOCARBAMOL
  40. MUCINEX [Concomitant]
     Active Substance: GUAIFENESIN
  41. MYCOPHENOLIC ACID [Concomitant]
     Active Substance: MYCOPHENOLIC ACID
  42. OMEPRAZOLE [Concomitant]
     Active Substance: OMEPRAZOLE
  43. OXYCODONE [Concomitant]
     Active Substance: OXYCODONE
  44. PANTOPRAZOLE [Concomitant]
     Active Substance: PANTOPRAZOLE
  45. POTASSIUM [Concomitant]
     Active Substance: POTASSIUM
  46. PROMETHAZINE [Concomitant]
     Active Substance: PROMETHAZINE HYDROCHLORIDE
  47. FLUTICASONE PROPIONATE [Concomitant]
     Active Substance: FLUTICASONE PROPIONATE
  48. ASCORBIC ACID\BIOTIN\CALCIUM PANTOTHENATE\CYANOCOBALAMIN\FOLIC ACID\NI [Concomitant]
     Active Substance: ASCORBIC ACID\BIOTIN\CALCIUM PANTOTHENATE\CYANOCOBALAMIN\FOLIC ACID\NIACINAMIDE\PYRIDOXINE HYDROCHLO
  49. SENSIPAR [Concomitant]
     Active Substance: CINACALCET HYDROCHLORIDE
  50. TACROLIMUS [Concomitant]
     Active Substance: TACROLIMUS
  51. TEMAZEPAM [Concomitant]
     Active Substance: TEMAZEPAM
  52. TRAMADOL [Concomitant]
     Active Substance: TRAMADOL
  53. TRAZODONE [Concomitant]
     Active Substance: TRAZODONE HYDROCHLORIDE
  54. ZIDOVUDINE [Concomitant]
     Active Substance: ZIDOVUDINE
  55. ZOLPIDEM [Concomitant]
     Active Substance: ZOLPIDEM TARTRATE

REACTIONS (14)
  - End stage renal disease [Not Recovered/Not Resolved]
  - Chronic kidney disease [Not Recovered/Not Resolved]
  - Renal failure [Not Recovered/Not Resolved]
  - Emotional distress [Not Recovered/Not Resolved]
  - Anhedonia [Not Recovered/Not Resolved]
  - Anxiety [Not Recovered/Not Resolved]
  - Pain [Not Recovered/Not Resolved]
  - Blood creatinine increased [Unknown]
  - Asthenia [Unknown]
  - Foot fracture [Not Recovered/Not Resolved]
  - Mobility decreased [Unknown]
  - Hyperparathyroidism secondary [Not Recovered/Not Resolved]
  - Anaemia [Not Recovered/Not Resolved]
  - Fatigue [Unknown]

NARRATIVE: CASE EVENT DATE: 20110201
